FAERS Safety Report 9793976 (Version 2)
Quarter: 2014Q2

REPORT INFORMATION
  Report Type: Spontaneous
  Country: US (occurrence: US)
  Receive Date: 20140102
  Receipt Date: 20140508
  Transmission Date: 20141212
  Serious: Yes (Other)
  Sender: FDA-Public Use
  Company Number: US-AMGEN-USASP2013090192

PATIENT
  Age: 60 Year
  Sex: Female

DRUGS (1)
  1. ENBREL [Suspect]
     Indication: RHEUMATOID ARTHRITIS
     Dosage: 50 MG, QWK
     Route: 065
     Dates: start: 20110727, end: 201312

REACTIONS (4)
  - Foot deformity [Not Recovered/Not Resolved]
  - Visual impairment [Not Recovered/Not Resolved]
  - Nodule [Not Recovered/Not Resolved]
  - Discomfort [Not Recovered/Not Resolved]
